FAERS Safety Report 12682111 (Version 1)
Quarter: 2016Q3

REPORT INFORMATION
  Report Type: Spontaneous
  Country: US (occurrence: US)
  Receive Date: 20160824
  Receipt Date: 20160824
  Transmission Date: 20161109
  Serious: No
  Sender: FDA-Public Use
  Company Number: US-CELGENEUS-USA-2016085450

PATIENT
  Age: 49 Year
  Sex: Female

DRUGS (3)
  1. OTEZLA [Suspect]
     Active Substance: APREMILAST
     Indication: PSORIATIC ARTHROPATHY
     Dosage: OTEZLA STARTER PACK
     Route: 048
     Dates: start: 20160813
  2. OTEZLA [Suspect]
     Active Substance: APREMILAST
     Dosage: OTEZLA STARTER PACK
     Route: 048
     Dates: start: 20160815
  3. OTEZLA [Suspect]
     Active Substance: APREMILAST
     Dosage: OTEZLA STARTER PACK
     Route: 048

REACTIONS (2)
  - Dizziness [Recovered/Resolved]
  - Tremor [Recovered/Resolved]

NARRATIVE: CASE EVENT DATE: 20160815
